FAERS Safety Report 12992920 (Version 1)
Quarter: 2016Q4

REPORT INFORMATION
  Report Type: Spontaneous
  Country: US (occurrence: US)
  Receive Date: 20161202
  Receipt Date: 20161202
  Transmission Date: 20170207
  Serious: Yes (Other)
  Sender: FDA-Public Use
  Company Number: US-HORIZON-KRY-0052-2016

PATIENT
  Sex: Male

DRUGS (1)
  1. KRYSTEXXA [Suspect]
     Active Substance: PEGLOTICASE
     Indication: PRODUCT USED FOR UNKNOWN INDICATION

REACTIONS (6)
  - Chest discomfort [Unknown]
  - Lip swelling [Unknown]
  - Paraesthesia oral [Unknown]
  - Dyspnoea [Unknown]
  - Tonic clonic movements [Unknown]
  - Hyperhidrosis [Unknown]
